FAERS Safety Report 15661504 (Version 1)
Quarter: 2018Q4

REPORT INFORMATION
  Report Type: Spontaneous
  Country: TR (occurrence: TR)
  Receive Date: 20181127
  Receipt Date: 20181127
  Transmission Date: 20190205
  Serious: Yes (Other)
  Sender: FDA-Public Use
  Company Number: PHHY2018TR152244

PATIENT
  Age: 54 Year
  Sex: Female

DRUGS (2)
  1. DIOVAN [Suspect]
     Active Substance: VALSARTAN
     Indication: HYPERTENSION
     Dosage: 1 DF, BID (MORNING AND EVENING)
     Route: 065
     Dates: end: 20181106
  2. DIOVAN [Suspect]
     Active Substance: VALSARTAN
     Indication: TINNITUS

REACTIONS (8)
  - Hypertension [Unknown]
  - Product use in unapproved indication [Unknown]
  - Asthenia [Unknown]
  - Feeling abnormal [Unknown]
  - Hypotension [Unknown]
  - Neoplasm malignant [Unknown]
  - Fall [Unknown]
  - Dizziness [Unknown]
